FAERS Safety Report 11459942 (Version 1)
Quarter: 2015Q3

REPORT INFORMATION
  Report Type: Spontaneous
  Country: US (occurrence: US)
  Receive Date: 20150904
  Receipt Date: 20150904
  Transmission Date: 20151125
  Serious: Yes (Hospitalization, Disabling, Other)
  Sender: FDA-Public Use
  Company Number: US-ASTRAZENECA-2015SE84251

PATIENT
  Age: 63 Year
  Sex: Female

DRUGS (1)
  1. SYMBICORT [Suspect]
     Active Substance: BUDESONIDE\FORMOTEROL FUMARATE DIHYDRATE
     Indication: CHRONIC OBSTRUCTIVE PULMONARY DISEASE
     Dosage: 180/4.5, TWO PUFFS, TWICE A DAY
     Route: 055
     Dates: start: 2005

REACTIONS (12)
  - Nerve injury [Unknown]
  - Bronchitis [Unknown]
  - Back pain [Unknown]
  - Skin ulcer [Unknown]
  - Choking [Not Recovered/Not Resolved]
  - Impaired healing [Unknown]
  - Cellulitis [Unknown]
  - Spinal column stenosis [Unknown]
  - Pneumonia [Unknown]
  - Peripheral swelling [Unknown]
  - Abasia [Recovering/Resolving]
  - Activities of daily living impaired [Not Recovered/Not Resolved]

NARRATIVE: CASE EVENT DATE: 2005
